FAERS Safety Report 13760064 (Version 1)
Quarter: 2017Q3

REPORT INFORMATION
  Report Type: Spontaneous
  Country: US (occurrence: US)
  Receive Date: 20170717
  Receipt Date: 20170717
  Transmission Date: 20171127
  Serious: No
  Sender: FDA-Public Use
  Company Number: US-AMGEN-USASP2017059307

PATIENT
  Age: 22 Year
  Sex: Female

DRUGS (1)
  1. CORLANOR [Suspect]
     Active Substance: IVABRADINE HYDROCHLORIDE
     Indication: HEART RATE ABNORMAL
     Dosage: 5 MG, BID
     Route: 048
     Dates: start: 201702

REACTIONS (2)
  - Wrong technique in product usage process [Unknown]
  - Off label use [Unknown]
